FAERS Safety Report 8512918-9 (Version None)
Quarter: 2012Q3

REPORT INFORMATION
  Report Type: 
  Country: None (occurrence: None)
  Receive Date: 20120716
  Receipt Date: 20120709
  Transmission Date: 20120928
  Serious: Yes (Other)
  Sender: FDA-Public Use
  Company Number: HR-ABBOTT-12P-216-0954580-00

PATIENT
  Age: 45 Year
  Sex: Female
  Weight: 90 kg

DRUGS (1)
  1. TRANDOLAPRIL [Suspect]
     Indication: HYPERTENSION
     Route: 048
     Dates: start: 20120605, end: 20120609

REACTIONS (5)
  - HYPERSENSITIVITY [None]
  - ANGIOEDEMA [None]
  - TONGUE OEDEMA [None]
  - JOINT STIFFNESS [None]
  - LIP OEDEMA [None]
